FAERS Safety Report 23068719 (Version 1)
Quarter: 2023Q4

REPORT INFORMATION
  Report Type: Report from Study
  Country: AT (occurrence: AT)
  Receive Date: 20231016
  Receipt Date: 20231016
  Transmission Date: 20240110
  Serious: Yes (Hospitalization)
  Sender: FDA-Public Use
  Company Number: AT-GENMAB-2023-01863

PATIENT
  Age: 41 Year
  Sex: Male
  Weight: 80 kg

DRUGS (12)
  1. EPCORITAMAB [Suspect]
     Active Substance: EPCORITAMAB
     Indication: Diffuse large B-cell lymphoma
     Dosage: 0.16 MG PRIMING DOSE; C1, D1, TOTAL
     Route: 058
     Dates: start: 20230923, end: 20230923
  2. EPCORITAMAB [Suspect]
     Active Substance: EPCORITAMAB
     Dosage: 0.8 MG INTERMEDIATE DOSE; C1, D8, TOTAL
     Route: 058
     Dates: start: 20230927, end: 20230927
  3. EPCORITAMAB [Suspect]
     Active Substance: EPCORITAMAB
     Dosage: 48 MG FULL DOSE, EVERY 1 WEEKS
     Route: 058
  4. VINCRISTINE [Suspect]
     Active Substance: VINCRISTINE
     Indication: Diffuse large B-cell lymphoma
     Dosage: 2 MG, EVERY 3 WEEKS
     Route: 042
     Dates: start: 20230920
  5. RITUXIMAB [Suspect]
     Active Substance: RITUXIMAB
     Indication: Diffuse large B-cell lymphoma
     Dosage: 808.15 MG, EVERY 3 WEEKS
     Route: 042
     Dates: start: 20230919
  6. CYCLOPHOSPHAMIDE [Suspect]
     Active Substance: CYCLOPHOSPHAMIDE
     Indication: Diffuse large B-cell lymphoma
     Dosage: 1616.3 MG, EVERY 3 WEEKS
     Route: 042
     Dates: start: 20230920
  7. DOXORUBICIN [Suspect]
     Active Substance: DOXORUBICIN
     Indication: Diffuse large B-cell lymphoma
     Dosage: 107.75 MG, EVERY 3 WEEKS
     Route: 042
     Dates: start: 20230920
  8. PREDNISONE [Suspect]
     Active Substance: PREDNISONE
     Indication: Diffuse large B-cell lymphoma
     Dosage: 100 MG C1-6, DAY 1-5, EVERY 1 DAYS
     Route: 048
     Dates: start: 20230920
  9. PANTOPRAZOLE SODIUM [Concomitant]
     Active Substance: PANTOPRAZOLE SODIUM
     Indication: Prophylaxis
     Dosage: 40 MG, EVERY 24 HOURS
     Dates: start: 20230915
  10. POLYETHYLENE GLYCOL 3350\POTASSIUM CHLORIDE\SODIUM BICARBONATE\SODIUM [Concomitant]
     Active Substance: POLYETHYLENE GLYCOL 3350\POTASSIUM CHLORIDE\SODIUM BICARBONATE\SODIUM CHLORIDE
     Indication: Prophylaxis
     Dosage: 1 PACK, EVERY 24 HOURS
     Dates: start: 20230920
  11. LIDAPRIM [SULFAMETROLE SODIUM;TRIMETHOPRIM] [Concomitant]
     Indication: Prophylaxis
     Dosage: 2 DOSAGE FORM, 2/WEEK
     Dates: start: 20230923
  12. VIROPEL [Concomitant]
     Indication: Antiviral prophylaxis
     Dosage: 500 MG, EVERY 24 HOURS
     Dates: start: 20230919

REACTIONS (2)
  - Pyrexia [Unknown]
  - Vertigo [Unknown]

NARRATIVE: CASE EVENT DATE: 20231004
